FAERS Safety Report 15417957 (Version 1)
Quarter: 2018Q3

REPORT INFORMATION
  Report Type: Spontaneous
  Country: US (occurrence: US)
  Receive Date: 20180924
  Receipt Date: 20180924
  Transmission Date: 20181010
  Serious: Yes (Other)
  Sender: FDA-Public Use
  Company Number: US-SA-2018SA106193

PATIENT
  Age: 48 Year
  Sex: Female
  Weight: 56.69 kg

DRUGS (4)
  1. TAXOTERE [Suspect]
     Active Substance: DOCETAXEL
     Dosage: 121.5 MG, Q3W
     Route: 051
     Dates: start: 20110510, end: 20110510
  2. NEOSAR [Concomitant]
     Active Substance: CYCLOPHOSPHAMIDE
     Dosage: 972 MG
     Route: 042
  3. TAXOTERE [Suspect]
     Active Substance: DOCETAXEL
     Indication: BREAST CANCER FEMALE
     Dosage: 121.5 MG, Q3W
     Route: 051
     Dates: start: 20110309, end: 20110309
  4. ATIVAN [Concomitant]
     Active Substance: LORAZEPAM

REACTIONS (2)
  - Alopecia [Recovering/Resolving]
  - Psychological trauma [Unknown]

NARRATIVE: CASE EVENT DATE: 20111110
